FAERS Safety Report 7206515-5 (Version None)
Quarter: 2011Q1

REPORT INFORMATION
  Report Type: 
  Country: None (occurrence: None)
  Receive Date: 20110103
  Receipt Date: 20101227
  Transmission Date: 20110831
  Serious: Yes (Other)
  Sender: FDA-Public Use
  Company Number: IT-SANOFI-AVENTIS-2010SA077949

PATIENT
  Age: 49 Year
  Sex: Female

DRUGS (1)
  1. CLEXANE T [Suspect]
     Dosage: DOSE:2 UNIT(S)
     Route: 058
     Dates: start: 20101113, end: 20101124

REACTIONS (3)
  - ASPARTATE AMINOTRANSFERASE INCREASED [None]
  - ALANINE AMINOTRANSFERASE INCREASED [None]
  - TRANSAMINASES INCREASED [None]
